FAERS Safety Report 9803522 (Version 1)
Quarter: 2014Q1

REPORT INFORMATION
  Report Type: Spontaneous
  Country: US (occurrence: US)
  Receive Date: 20140108
  Receipt Date: 20140108
  Transmission Date: 20141002
  Serious: No
  Sender: FDA-Public Use
  Company Number: US-GLAXOSMITHKLINE-A1003559A

PATIENT
  Age: 65 Year
  Sex: Male

DRUGS (5)
  1. LOVAZA [Suspect]
     Indication: NEPHRITIS
     Dosage: 1G THREE TIMES PER DAY
     Route: 048
     Dates: start: 20121107, end: 20121113
  2. MICARDIS [Concomitant]
  3. AMLODIPINE [Concomitant]
  4. METOPROLOL [Concomitant]
  5. HYDROCHLOROTHIAZIDE [Concomitant]

REACTIONS (3)
  - Rash [Recovering/Resolving]
  - Pruritus [Recovering/Resolving]
  - Hypersensitivity [Recovering/Resolving]
